FAERS Safety Report 19011930 (Version 1)
Quarter: 2021Q1

REPORT INFORMATION
  Report Type: Spontaneous
  Country: ES (occurrence: ES)
  Receive Date: 20210316
  Receipt Date: 20210316
  Transmission Date: 20210420
  Serious: Yes (Other)
  Sender: FDA-Public Use
  Company Number: ES-SA-2021SA087182

PATIENT
  Age: 75 Year
  Sex: Male
  Weight: 62 kg

DRUGS (2)
  1. CLOXACILINA IPS [Suspect]
     Active Substance: CLOXACILLIN SODIUM
     Indication: MEDICAL DEVICE SITE JOINT INFECTION
     Dosage: FREQUENCY 4H
     Route: 042
     Dates: start: 20201125, end: 20201204
  2. RIFALDIN [Suspect]
     Active Substance: RIFAMPIN
     Indication: MEDICAL DEVICE SITE JOINT INFECTION
     Route: 048
     Dates: start: 20201201, end: 20201204

REACTIONS (3)
  - Acute kidney injury [Recovered/Resolved]
  - Proteinuria [Recovered/Resolved]
  - Haematuria [Recovered/Resolved]

NARRATIVE: CASE EVENT DATE: 20201204
